FAERS Safety Report 6535692-4 (Version None)
Quarter: 2010Q1

REPORT INFORMATION
  Report Type: 
  Country: None (occurrence: None)
  Receive Date: 20100113
  Receipt Date: 20100104
  Transmission Date: 20100710
  Serious: Yes (Hospitalization)
  Sender: FDA-Public Use
  Company Number: FR-ASTRAZENECA-2010SE00161

PATIENT
  Age: 28402 Day
  Sex: Female

DRUGS (14)
  1. NEXIUM [Suspect]
     Route: 048
     Dates: start: 20091102, end: 20091118
  2. ARAVA [Suspect]
     Route: 048
     Dates: start: 20091022, end: 20091121
  3. FUCITHALMIC [Suspect]
     Dates: start: 20091102, end: 20091112
  4. PNEUMO 23 [Suspect]
     Route: 030
     Dates: start: 20091102, end: 20091102
  5. REPEVAX [Suspect]
     Route: 030
     Dates: start: 20091107, end: 20091107
  6. KETOPROFEN [Suspect]
     Route: 048
     Dates: start: 20091118, end: 20091120
  7. AUGMENTIN [Suspect]
     Route: 048
     Dates: start: 20091118, end: 20091119
  8. ZELITREX [Suspect]
     Route: 048
     Dates: start: 20091118, end: 20091119
  9. ASMELOR-NOVOLIZER [Concomitant]
  10. TRIMBUTINE [Concomitant]
  11. XANAX [Concomitant]
  12. ALDACTAZINE [Concomitant]
  13. CONTRAMAL [Concomitant]
  14. DUPHALAC [Concomitant]

REACTIONS (3)
  - CHEILITIS [None]
  - RASH [None]
  - STEVENS-JOHNSON SYNDROME [None]
